FAERS Safety Report 6392407-0 (Version None)
Quarter: 2009Q4

REPORT INFORMATION
  Report Type: 
  Country: None (occurrence: None)
  Receive Date: 20091007
  Receipt Date: 20090716
  Transmission Date: 20100525
  Serious: Yes (Death, Hospitalization)
  Sender: FDA-Public Use
  Company Number: FR-PFIZER INC-2009265917

PATIENT
  Age: 71 Year

DRUGS (12)
  1. EPIRUBICIN HCL [Suspect]
     Indication: GASTRIC CANCER
  2. CISPLATIN [Suspect]
     Indication: GASTRIC CANCER
  3. CAPECITABINE [Suspect]
     Indication: GASTRIC CANCER
  4. ATACAND [Concomitant]
     Indication: HYPERTENSION
     Dosage: 2 MG/DAY
     Route: 048
  5. KARDEGIC [Concomitant]
     Dosage: 75 MG/DAY
     Route: 048
  6. TEMESTA [Concomitant]
     Indication: ANXIOLYTIC THERAPY
     Dosage: 1.5 MG/DAY
     Route: 048
  7. TRANSIPEG [Concomitant]
     Indication: CONSTIPATION
     Dosage: 2 TO 3 DF/DAY
     Route: 048
  8. NEXIUM [Concomitant]
     Dosage: 1 DF, 2X/DAY
     Route: 048
  9. PRIMPERAN [Concomitant]
     Indication: NAUSEA
     Dosage: 30 MG/DAY
     Route: 048
  10. DOLIPRANE [Concomitant]
     Indication: PAIN
     Dosage: 3 G/DAY
     Route: 048
  11. TANAKAN [Concomitant]
     Indication: HYPERTENSION
     Route: 048
  12. LYSOPAINE [Concomitant]
     Indication: PAIN
     Dosage: 1 DF/DAY
     Route: 048

REACTIONS (3)
  - DISEASE PROGRESSION [None]
  - GASTRIC CANCER [None]
  - GENERAL PHYSICAL HEALTH DETERIORATION [None]
